FAERS Safety Report 7301966-2 (Version None)
Quarter: 2011Q1

REPORT INFORMATION
  Report Type: 
  Country: None (occurrence: None)
  Receive Date: 20110218
  Receipt Date: 20110207
  Transmission Date: 20110831
  Serious: No
  Sender: FDA-Public Use
  Company Number: JP-ROCHE-759944

PATIENT
  Age: 31 Year
  Sex: Male

DRUGS (1)
  1. TAMIFLU [Suspect]
     Route: 048
     Dates: start: 20110207, end: 20110207

REACTIONS (2)
  - DRUG ADMINISTRATION ERROR [None]
  - PAIN [None]
